FAERS Safety Report 6692931-7 (Version None)
Quarter: 2010Q2

REPORT INFORMATION
  Report Type: 
  Country: None (occurrence: None)
  Receive Date: 20100422
  Receipt Date: 20100409
  Transmission Date: 20101027
  Serious: Yes (Other)
  Sender: FDA-Public Use
  Company Number: DK-ELI_LILLY_AND_COMPANY-DK201004003426

PATIENT
  Sex: Female

DRUGS (4)
  1. ZYPREXA [Suspect]
     Indication: HALLUCINATION
     Dosage: UNK, UNK
     Dates: start: 20020101, end: 20030101
  2. ZYPREXA [Suspect]
     Dosage: UNK, UNKNOWN
     Dates: start: 20030101
  3. ZELDOX [Concomitant]
     Indication: MENTAL DISORDER
     Dates: start: 20030101, end: 20040101
  4. EFFEXOR [Concomitant]
     Indication: MENTAL DISORDER
     Dates: start: 20030101, end: 20040101

REACTIONS (11)
  - AMNESIA [None]
  - ANXIETY [None]
  - DEPRESSION [None]
  - DISTURBANCE IN ATTENTION [None]
  - LEARNING DISORDER [None]
  - PARANOIA [None]
  - PERSONALITY DISORDER [None]
  - PSYCHIATRIC SYMPTOM [None]
  - PSYCHOTIC DISORDER [None]
  - SELF ESTEEM DECREASED [None]
  - WEIGHT INCREASED [None]
